FAERS Safety Report 17509635 (Version 1)
Quarter: 2020Q1

REPORT INFORMATION
  Report Type: Spontaneous
  Country: ES (occurrence: ES)
  Receive Date: 20200306
  Receipt Date: 20200306
  Transmission Date: 20200409
  Serious: Yes (Hospitalization, Other)
  Sender: FDA-Public Use
  Company Number: ES-TEVA-2020-ES-1195346

PATIENT
  Age: 61 Year
  Sex: Male

DRUGS (2)
  1. OXALIPLATINO TEVA 5MG/ML [Suspect]
     Active Substance: OXALIPLATIN
     Route: 042
     Dates: start: 20200203
  2. CAPECITABINE. [Suspect]
     Active Substance: CAPECITABINE
     Route: 042
     Dates: start: 20200203

REACTIONS (5)
  - Dyspnoea [Unknown]
  - Tachycardia [Unknown]
  - Respiratory disorder [Unknown]
  - Stridor [Unknown]
  - Hypotension [Unknown]

NARRATIVE: CASE EVENT DATE: 20200224
